FAERS Safety Report 14069913 (Version 3)
Quarter: 2017Q4

REPORT INFORMATION
  Report Type: Report from Study
  Country: AU (occurrence: AU)
  Receive Date: 20171010
  Receipt Date: 20171101
  Transmission Date: 20180321
  Serious: Yes (Other)
  Sender: FDA-Public Use
  Company Number: PHHY2017AU148832

PATIENT
  Age: 58 Year
  Sex: Female

DRUGS (2)
  1. LEE011 [Suspect]
     Active Substance: RIBOCICLIB
     Dosage: 600 MG, QD
     Route: 048
     Dates: start: 20171003
  2. LEE011 [Suspect]
     Active Substance: RIBOCICLIB
     Indication: BREAST CANCER METASTATIC
     Dosage: 600 MG, QD
     Route: 048
     Dates: start: 20170924, end: 20171002

REACTIONS (5)
  - Abdominal pain [Recovering/Resolving]
  - Cholecystitis [Unknown]
  - Electrocardiogram QT prolonged [Unknown]
  - Liver function test abnormal [Recovering/Resolving]
  - Gilbert^s syndrome [Unknown]

NARRATIVE: CASE EVENT DATE: 20171002
